FAERS Safety Report 17811450 (Version 2)
Quarter: 2020Q2

REPORT INFORMATION
  Report Type: Report from Study
  Country: TW (occurrence: TW)
  Receive Date: 20200521
  Receipt Date: 20200528
  Transmission Date: 20200714
  Serious: Yes (Hospitalization)
  Sender: FDA-Public Use
  Company Number: TW-BAYER-2019-232911

PATIENT
  Age: 58 Year
  Sex: Male
  Weight: 68 kg

DRUGS (22)
  1. CEFAZOLIN [Concomitant]
     Active Substance: CEFAZOLIN
     Dosage: 1000 MG, PRN
     Dates: start: 20191219, end: 20191220
  2. CARDOLOL [Concomitant]
     Active Substance: PROPRANOLOL HYDROCHLORIDE
     Dosage: 10 MG, BID
     Dates: start: 20200408, end: 20200408
  3. CARDOLOL [Concomitant]
     Active Substance: PROPRANOLOL HYDROCHLORIDE
     Dosage: 10 MG, BID
     Dates: start: 20200410, end: 20200424
  4. SENNA LEAF [Concomitant]
     Active Substance: SENNA LEAF
     Dosage: 15 MG, QD
     Dates: start: 20191220, end: 20191224
  5. CEFADROXIL. [Concomitant]
     Active Substance: CEFADROXIL
     Dosage: 1000 MG, BID
     Dates: start: 20191220, end: 20191222
  6. CEFADROXIL. [Concomitant]
     Active Substance: CEFADROXIL
     Dosage: 1000 MG, BID
     Dates: start: 20191220, end: 20191223
  7. STIVARGA [Suspect]
     Active Substance: REGORAFENIB
     Indication: HEPATOCELLULAR CARCINOMA
     Dosage: 80 MG, QD
     Dates: start: 20191126, end: 20200406
  8. SENNA LEAF [Concomitant]
     Active Substance: SENNA LEAF
     Dosage: 15 MG, QD
     Dates: start: 20200121, end: 20200217
  9. PHYTOMENADIONE [Concomitant]
     Active Substance: PHYTONADIONE
     Dosage: 20 MG, ONCE
     Dates: start: 20200405, end: 20200406
  10. INDERAL [Concomitant]
     Active Substance: PROPRANOLOL HYDROCHLORIDE
     Dosage: 40 MG, BID
     Dates: start: 20200428, end: 20200511
  11. STIVARGA [Suspect]
     Active Substance: REGORAFENIB
     Indication: HEPATOCELLULAR CARCINOMA
     Dosage: 80 MG, QD
     Dates: start: 20200410, end: 20200515
  12. CARDOLOL [Concomitant]
     Active Substance: PROPRANOLOL HYDROCHLORIDE
     Dosage: 20 MG, BID
     Dates: start: 20200421, end: 20200428
  13. ACETAMINOPHEN. [Concomitant]
     Active Substance: ACETAMINOPHEN
     Dosage: 500 MG, QID
     Dates: start: 20191220, end: 20191224
  14. CEFUROXIME. [Concomitant]
     Active Substance: CEFUROXIME
     Dosage: 1500 MG, TID
     Dates: start: 20191222, end: 20191224
  15. LIPITOR [Concomitant]
     Active Substance: ATORVASTATIN CALCIUM
     Dosage: 20 MG, QD
     Dates: start: 20200410, end: 20200424
  16. STIVARGA [Suspect]
     Active Substance: REGORAFENIB
     Indication: HEPATOCELLULAR CARCINOMA
     Dosage: 80 MG, QD
     Dates: start: 20191001, end: 20191113
  17. CARDOLOL [Concomitant]
     Active Substance: PROPRANOLOL HYDROCHLORIDE
     Dosage: 10 MG, BID
     Dates: start: 20200408, end: 20200410
  18. INDERAL [Concomitant]
     Active Substance: PROPRANOLOL HYDROCHLORIDE
     Dosage: 60 MG, BID
     Dates: start: 20200512
  19. MORPHINE HCL [Concomitant]
     Active Substance: MORPHINE HYDROCHLORIDE
     Dosage: 40 MG, ONCE
     Dates: start: 20191220, end: 20191221
  20. SENNA LEAF [Concomitant]
     Active Substance: SENNA LEAF
     Dosage: 15 MG, QD
     Dates: start: 20191220, end: 20191223
  21. TRANEXAMIC ACID. [Concomitant]
     Active Substance: TRANEXAMIC ACID
     Dosage: 500 MG
     Dates: start: 20191220, end: 20191221
  22. LIPITOR [Concomitant]
     Active Substance: ATORVASTATIN CALCIUM
     Dosage: 20 MG, QD
     Dates: start: 20200406, end: 20200410

REACTIONS (5)
  - Duodenal ulcer haemorrhage [Recovered/Resolved]
  - Malignant neoplasm of renal pelvis [Not Recovered/Not Resolved]
  - Oesophageal varices haemorrhage [Recovered/Resolved]
  - Melaena [Recovered/Resolved]
  - Melaena [Recovered/Resolved]

NARRATIVE: CASE EVENT DATE: 20191219
